FAERS Safety Report 7363590-5 (Version None)
Quarter: 2011Q1

REPORT INFORMATION
  Report Type: 
  Country: None (occurrence: None)
  Receive Date: 20110321
  Receipt Date: 20110315
  Transmission Date: 20110831
  Serious: Yes (Life-Threatening)
  Sender: FDA-Public Use
  Company Number: FR-PFIZER INC-2011056207

PATIENT
  Age: 68 Year
  Sex: Female

DRUGS (9)
  1. FORLAX [Concomitant]
  2. EUPANTOL [Concomitant]
  3. VITAMIN B1 TAB [Concomitant]
  4. DIFFU K [Concomitant]
  5. MAG 2 [Concomitant]
  6. VITAMIN B6 [Concomitant]
  7. TAMSULOSIN [Concomitant]
  8. TARGOCID [Suspect]
     Indication: INTERVERTEBRAL DISCITIS
     Dosage: 400 MG, 1X/DAY
     Route: 042
     Dates: start: 20110115, end: 20110228
  9. DALACINE [Suspect]
     Indication: INTERVERTEBRAL DISCITIS
     Dosage: 600 MG, 4X/DAY
     Route: 048
     Dates: end: 20110301

REACTIONS (2)
  - AGRANULOCYTOSIS [None]
  - C-REACTIVE PROTEIN INCREASED [None]
